FAERS Safety Report 9300532 (Version 2)
Quarter: 2013Q3

REPORT INFORMATION
  Report Type: Report from Study
  Country: US (occurrence: US)
  Receive Date: 20130521
  Receipt Date: 20130826
  Transmission Date: 20140515
  Serious: Yes (Other)
  Sender: FDA-Public Use
  Company Number: US-ROCHE-1224425

PATIENT
  Sex: 0

DRUGS (5)
  1. BEVACIZUMAB [Suspect]
     Indication: NEOPLASM
     Dosage: ON DAY 1
     Route: 042
  2. IRINOTECAN [Suspect]
     Indication: NEOPLASM
     Dosage: MAX 60 MG/DAY
     Route: 042
  3. IRINOTECAN [Suspect]
     Dosage: MAX 100 MG/DAY
     Route: 042
  4. VINCRISTINE [Suspect]
     Indication: NEOPLASM
     Dosage: DAY 1 AND DAY 8
     Route: 042
  5. TEMOZOLOMIDE [Suspect]
     Indication: NEOPLASM
     Dosage: DAY 1-5
     Route: 048

REACTIONS (13)
  - Anaemia [Unknown]
  - Neutropenia [Unknown]
  - Thrombocytopenia [Unknown]
  - Colitis [Unknown]
  - Hyperbilirubinaemia [Unknown]
  - Diarrhoea [Unknown]
  - Febrile neutropenia [Unknown]
  - Hypoalbuminaemia [Unknown]
  - Hypocalcaemia [Unknown]
  - Hypokalaemia [Unknown]
  - Hyponatraemia [Unknown]
  - Neuropathy peripheral [Unknown]
  - Alanine aminotransferase increased [Unknown]
